FAERS Safety Report 5769326-3 (Version None)
Quarter: 2008Q2

REPORT INFORMATION
  Report Type: 
  Country: None (occurrence: None)
  Receive Date: 20080610
  Receipt Date: 20080603
  Transmission Date: 20081010
  Serious: Yes (Death, Hospitalization, Other)
  Sender: FDA-Public Use
  Company Number: 163-21880-08041180

PATIENT
  Age: 68 Year
  Sex: Female

DRUGS (3)
  1. REVLIMID [Suspect]
     Indication: MULTIPLE MYELOMA
     Dosage: 10 MG, DAILY FOR 28 DAYS, ORAL
     Route: 048
     Dates: start: 20080328
  2. DEXAMETHASPME DEXAMETHASONE) [Concomitant]
  3. ASPIRIN [Concomitant]

REACTIONS (4)
  - FATIGUE [None]
  - HYPERTENSION [None]
  - OEDEMA [None]
  - RENAL IMPAIRMENT [None]
